FAERS Safety Report 4939340-6 (Version None)
Quarter: 2006Q1

REPORT INFORMATION
  Report Type: 
  Country: None (occurrence: None)
  Receive Date: 20060310
  Receipt Date: 20060215
  Transmission Date: 20060701
  Serious: Yes (Hospitalization)
  Sender: FDA-Public Use
  Company Number: JP-AVENTIS-200610542JP

PATIENT
  Age: 40 Year
  Sex: Female
  Weight: 63.05 kg

DRUGS (6)
  1. TAXOTERE [Suspect]
     Indication: NEOPLASM MALIGNANT
     Route: 041
  2. TAXOTERE [Suspect]
     Indication: UTERINE CANCER
     Route: 041
  3. CDDP [Concomitant]
     Indication: NEOPLASM MALIGNANT
  4. CDDP [Concomitant]
     Indication: UTERINE CANCER
  5. FLUOROURACIL [Concomitant]
     Indication: NEOPLASM MALIGNANT
  6. FLUOROURACIL [Concomitant]
     Indication: UTERINE CANCER

REACTIONS (2)
  - EXTRAPYRAMIDAL DISORDER [None]
  - VISUAL ACUITY REDUCED [None]
